FAERS Safety Report 16198480 (Version 1)
Quarter: 2019Q2

REPORT INFORMATION
  Report Type: Spontaneous
  Country: US (occurrence: US)
  Receive Date: 20190415
  Receipt Date: 20190415
  Transmission Date: 20190711
  Serious: Yes (Hospitalization)
  Sender: FDA-Public Use
  Company Number: US-AMREGENT-20190740

PATIENT
  Age: 69 Year
  Sex: Male

DRUGS (3)
  1. NO DRUG NAME [Concomitant]
     Dosage: UNKNOWN
     Route: 065
  2. DEXAMETHASONE SODIUM PHOSPHATE INJECTION, USP (4901-25) [Suspect]
     Active Substance: DEXAMETHASONE SODIUM PHOSPHATE
     Dosage: 12.5 MG ONCE
     Route: 008
  3. GLIPIZIDE. [Concomitant]
     Active Substance: GLIPIZIDE
     Dosage: UNKNOWN
     Route: 065

REACTIONS (3)
  - Hyperglycaemic hyperosmolar nonketotic syndrome [Recovering/Resolving]
  - Product use in unapproved indication [Unknown]
  - Incorrect route of product administration [Unknown]
